FAERS Safety Report 20949579 (Version 1)
Quarter: 2022Q2

REPORT INFORMATION
  Report Type: Report from Study
  Country: US (occurrence: None)
  Receive Date: 20220613
  Receipt Date: 20220613
  Transmission Date: 20220720
  Serious: Yes (Death, Hospitalization)
  Sender: FDA-Public Use
  Company Number: US-ROCHE-2811571

PATIENT
  Age: 78 Year
  Sex: Male
  Weight: 77.7 kg

DRUGS (6)
  1. ATEZOLIZUMAB [Suspect]
     Active Substance: ATEZOLIZUMAB
     Indication: Diffuse large B-cell lymphoma
     Route: 042
     Dates: start: 20200323
  2. RITUXIMAB [Suspect]
     Active Substance: RITUXIMAB
     Indication: Diffuse large B-cell lymphoma
     Dosage: ON 23/MAR/2020, HE RECEIVED THE MOST RECENT DOSE OF RITUXIMAB PRIOR TO SAE.
     Route: 042
  3. GEMCITABINE HYDROCHLORIDE [Suspect]
     Active Substance: GEMCITABINE HYDROCHLORIDE
     Indication: Diffuse large B-cell lymphoma
     Dosage: ON 23/MAR/2020, HE RECEIVED THE MOST RECENT DOSE OF GEMCITABINE HYDROCHLORIDE PRIOR TO SAE.
     Route: 042
  4. OXALIPLATIN [Suspect]
     Active Substance: OXALIPLATIN
     Indication: Diffuse large B-cell lymphoma
     Dosage: ON 23/MAR/2020, HE RECEIVED THE MOST RECENT DOSE OF OXALIPLATIN PRIOR TO SAE.
     Route: 042
  5. VANCOMYCIN [Concomitant]
     Active Substance: VANCOMYCIN
  6. ZOSYN [Concomitant]
     Active Substance: PIPERACILLIN SODIUM\TAZOBACTAM SODIUM

REACTIONS (2)
  - Infusion related reaction [Not Recovered/Not Resolved]
  - Pulseless electrical activity [Fatal]

NARRATIVE: CASE EVENT DATE: 20200323
